FAERS Safety Report 7844179-8 (Version None)
Quarter: 2011Q4

REPORT INFORMATION
  Report Type: 
  Country: None (occurrence: None)
  Receive Date: 20111014
  Receipt Date: 20111006
  Transmission Date: 20120403
  Serious: No
  Sender: FDA-Public Use
  Company Number: A0943322A

PATIENT
  Age: 49 Year
  Sex: Male

DRUGS (1)
  1. CALCIUM CARBONATE [Suspect]
     Indication: DYSPEPSIA
     Dates: end: 20110902

REACTIONS (4)
  - TABLET PHYSICAL ISSUE [None]
  - PRODUCT QUALITY ISSUE [None]
  - TOOTH DISORDER [None]
  - TOOTH FRACTURE [None]
